FAERS Safety Report 21789272 (Version 1)
Quarter: 2022Q4

REPORT INFORMATION
  Report Type: Spontaneous
  Country: BF (occurrence: BF)
  Receive Date: 20221228
  Receipt Date: 20221228
  Transmission Date: 20230113
  Serious: Yes (Death)
  Sender: FDA-Public Use
  Company Number: BF-002147023-NVSC2022BF299662

PATIENT
  Age: 32 Year
  Sex: Female

DRUGS (1)
  1. GLIVEC [Suspect]
     Active Substance: IMATINIB MESYLATE
     Indication: Chronic myeloid leukaemia
     Dosage: 400 MG, QD (4X100 MG)
     Route: 065
     Dates: start: 20200213

REACTIONS (2)
  - Death [Fatal]
  - Meningitis bacterial [Fatal]

NARRATIVE: CASE EVENT DATE: 20200601
